FAERS Safety Report 7207200-6 (Version None)
Quarter: 2010Q4

REPORT INFORMATION
  Report Type: 
  Country: None (occurrence: None)
  Receive Date: 20101214
  Receipt Date: 20101208
  Transmission Date: 20110411
  Serious: Yes (Other)
  Sender: FDA-Public Use
  Company Number: 8055033

PATIENT
  Age: 36 Year
  Sex: Male

DRUGS (6)
  1. KEPPRA [Suspect]
     Indication: GRAND MAL CONVULSION
     Dosage: (1000 MG BID ORAL)
     Route: 048
     Dates: start: 20020101, end: 20091201
  2. ANTIOXIDANT /02147801/ [Concomitant]
  3. ASCORBIC ACID [Concomitant]
  4. RETINOL [Concomitant]
  5. SELENIUM [Concomitant]
  6. TOCOPHEROL CONCENTRATE CAP [Concomitant]

REACTIONS (3)
  - CONDITION AGGRAVATED [None]
  - DRUG TOLERANCE [None]
  - GRAND MAL CONVULSION [None]
